FAERS Safety Report 5049589-2 (Version None)
Quarter: 2006Q3

REPORT INFORMATION
  Report Type: 
  Country: None (occurrence: None)
  Receive Date: 20060712
  Receipt Date: 20060705
  Transmission Date: 20061208
  Serious: Yes (Hospitalization, Other)
  Sender: FDA-Public Use
  Company Number: US-BRISTOL-MYERS SQUIBB COMPANY-13433586

PATIENT
  Age: 46 Year
  Sex: Female

DRUGS (4)
  1. CYTOXAN [Suspect]
     Indication: BREAST CANCER
     Dates: end: 20060401
  2. DOXORUBICIN HCL [Suspect]
  3. TAXOTERE [Suspect]
     Indication: BREAST CANCER
     Dates: end: 20060401
  4. DEXAMETHASONE TAB [Concomitant]

REACTIONS (6)
  - CARDIAC TAMPONADE [None]
  - CHRONIC MYELOMONOCYTIC LEUKAEMIA [None]
  - DYSPNOEA [None]
  - PERICARDIAL EFFUSION [None]
  - PLEURAL EFFUSION [None]
  - TREATMENT RELATED SECONDARY MALIGNANCY [None]
